FAERS Safety Report 7371504-7 (Version None)
Quarter: 2011Q1

REPORT INFORMATION
  Report Type: 
  Country: None (occurrence: None)
  Receive Date: 20110324
  Receipt Date: 20110316
  Transmission Date: 20110831
  Serious: Yes (Hospitalization)
  Sender: FDA-Public Use
  Company Number: GB-US-EMD SERONO, INC.-7047975

PATIENT
  Sex: Female

DRUGS (2)
  1. ARCOXIA [Interacting]
  2. REBIF [Suspect]
     Indication: PRODUCT USED FOR UNKNOWN INDICATION

REACTIONS (6)
  - HALLUCINATION [None]
  - ANGER [None]
  - SOMNOLENCE [None]
  - SPINAL OPERATION [None]
  - CONFUSIONAL STATE [None]
  - DRUG INTERACTION [None]
